FAERS Safety Report 6120045-3 (Version None)
Quarter: 2009Q1

REPORT INFORMATION
  Report Type: 
  Country: None (occurrence: None)
  Receive Date: 20090316
  Receipt Date: 20090307
  Transmission Date: 20090719
  Serious: Yes (Hospitalization)
  Sender: FDA-Public Use
  Company Number: US-PFIZER INC-2009179591

PATIENT
  Sex: Female
  Weight: 120.18 kg

DRUGS (19)
  1. BLINDED *PLACEBO [Suspect]
     Indication: OSTEOARTHRITIS
     Dosage: UNK
     Route: 048
  2. BLINDED CELECOXIB [Suspect]
     Indication: OSTEOARTHRITIS
     Dosage: UNK
     Route: 048
  3. IBUPROFEN TABLETS [Suspect]
     Indication: OSTEOARTHRITIS
     Dosage: UNK
     Route: 048
  4. NAPROXEN [Suspect]
     Indication: OSTEOARTHRITIS
     Dosage: UNK
     Route: 048
  5. BLINDED *PLACEBO [Suspect]
     Indication: RHEUMATOID ARTHRITIS
  6. BLINDED CELECOXIB [Suspect]
     Indication: RHEUMATOID ARTHRITIS
  7. IBUPROFEN TABLETS [Suspect]
     Indication: RHEUMATOID ARTHRITIS
  8. NAPROXEN [Suspect]
     Indication: RHEUMATOID ARTHRITIS
  9. NEXIUM [Concomitant]
     Dosage: 40 MG, 1X/DAY
     Route: 048
     Dates: start: 20080110
  10. NEXIUM [Concomitant]
     Dosage: 20 MG, 1X/DAY
     Route: 048
     Dates: start: 20070503, end: 20080110
  11. LISINOPRIL [Concomitant]
     Dosage: UNK
     Route: 048
     Dates: start: 20060405
  12. HYDROCHLOROTHIAZIDE [Concomitant]
     Dosage: UNK
     Route: 048
     Dates: start: 20060405
  13. LYRICA [Concomitant]
     Dosage: UNK
     Route: 048
     Dates: start: 20080930
  14. VENTOLIN [Concomitant]
     Dosage: UNK
     Route: 055
     Dates: start: 20071206
  15. K-DUR [Concomitant]
     Dosage: UNK
     Route: 048
     Dates: start: 20080930
  16. FUROSEMIDE [Concomitant]
     Dosage: UNK
     Route: 048
     Dates: start: 20080930
  17. ATENOLOL [Concomitant]
     Dosage: UNK
     Route: 048
     Dates: start: 20081105
  18. PRED MILD [Concomitant]
     Dosage: UNK
     Route: 047
     Dates: start: 20071206
  19. VALIUM [Concomitant]
     Dosage: UNK
     Route: 048
     Dates: start: 20071206

REACTIONS (1)
  - ULCER [None]
